FAERS Safety Report 13015447 (Version 1)
Quarter: 2016Q4

REPORT INFORMATION
  Report Type: Report from Study
  Country: RU (occurrence: RU)
  Receive Date: 20161211
  Receipt Date: 20161211
  Transmission Date: 20170207
  Serious: Yes (Life-Threatening, Hospitalization, Disabling, Other)
  Sender: FDA-Public Use
  Company Number: RU-ASTRAZENECA-2016SF08013

PATIENT
  Age: 9964 Day
  Sex: Male

DRUGS (27)
  1. AZD9941 CODE NOT BROKEN [Suspect]
     Active Substance: ROXADUSTAT
     Indication: NEPHROGENIC ANAEMIA
     Route: 065
     Dates: start: 20151027, end: 20151107
  2. AZD9941 CODE NOT BROKEN [Suspect]
     Active Substance: ROXADUSTAT
     Indication: NEPHROGENIC ANAEMIA
     Route: 065
     Dates: start: 20151208, end: 20151222
  3. AZD9941 CODE NOT BROKEN [Suspect]
     Active Substance: ROXADUSTAT
     Indication: NEPHROGENIC ANAEMIA
     Route: 065
     Dates: start: 20160216, end: 20160329
  4. AZD9941 CODE NOT BROKEN [Suspect]
     Active Substance: ROXADUSTAT
     Indication: NEPHROGENIC ANAEMIA
     Route: 065
     Dates: start: 20161108, end: 20161206
  5. IRON III HYDROXIDE [Concomitant]
     Indication: ANAEMIA
     Dosage: 5.000 ML 2 TIMES PER WEEK
     Route: 042
     Dates: start: 20141011
  6. CALCIUM CARBONATE. [Concomitant]
     Active Substance: CALCIUM CARBONATE
     Indication: ANAEMIA
     Dosage: 1 SPOON TID
     Route: 048
     Dates: start: 20160201
  7. ALFACALCIDOL [Concomitant]
     Active Substance: ALFACALCIDOL
     Indication: ANAEMIA
     Route: 048
     Dates: start: 20160407
  8. OMEPRAZOLE. [Suspect]
     Active Substance: OMEPRAZOLE
     Indication: DUODENAL ULCER
     Route: 048
     Dates: start: 20111020
  9. AZD9941 CODE NOT BROKEN [Suspect]
     Active Substance: ROXADUSTAT
     Indication: NEPHROGENIC ANAEMIA
     Route: 065
     Dates: start: 20160426, end: 20160524
  10. AZD9941 CODE NOT BROKEN [Suspect]
     Active Substance: ROXADUSTAT
     Indication: NEPHROGENIC ANAEMIA
     Route: 065
     Dates: start: 20160719, end: 20160816
  11. AZD9941 CODE NOT BROKEN [Suspect]
     Active Substance: ROXADUSTAT
     Indication: NEPHROGENIC ANAEMIA
     Route: 065
     Dates: start: 20151013, end: 20151024
  12. AZD9941 CODE NOT BROKEN [Suspect]
     Active Substance: ROXADUSTAT
     Indication: NEPHROGENIC ANAEMIA
     Route: 065
     Dates: start: 20151124, end: 20151208
  13. AZD9941 CODE NOT BROKEN [Suspect]
     Active Substance: ROXADUSTAT
     Indication: NEPHROGENIC ANAEMIA
     Route: 065
     Dates: start: 20160621, end: 20160719
  14. FOLIC ACID. [Concomitant]
     Active Substance: FOLIC ACID
     Indication: ANAEMIA
     Dosage: 3.000 MG QH
     Route: 048
     Dates: start: 20141011
  15. AZD9941 CODE NOT BROKEN [Suspect]
     Active Substance: ROXADUSTAT
     Indication: NEPHROGENIC ANAEMIA
     Route: 065
     Dates: start: 20160913, end: 20161011
  16. AZD9941 CODE NOT BROKEN [Suspect]
     Active Substance: ROXADUSTAT
     Indication: NEPHROGENIC ANAEMIA
     Route: 065
     Dates: start: 20161206
  17. AZD9941 CODE NOT BROKEN [Suspect]
     Active Substance: ROXADUSTAT
     Indication: NEPHROGENIC ANAEMIA
     Route: 065
     Dates: start: 20160329, end: 20160426
  18. AZD9941 CODE NOT BROKEN [Suspect]
     Active Substance: ROXADUSTAT
     Indication: NEPHROGENIC ANAEMIA
     Route: 065
     Dates: start: 20160119, end: 20160202
  19. AZD9941 CODE NOT BROKEN [Suspect]
     Active Substance: ROXADUSTAT
     Indication: NEPHROGENIC ANAEMIA
     Route: 065
     Dates: start: 20160816, end: 20160913
  20. AZD9941 CODE NOT BROKEN [Suspect]
     Active Substance: ROXADUSTAT
     Indication: NEPHROGENIC ANAEMIA
     Route: 065
     Dates: start: 20161011, end: 20161108
  21. AZD9941 CODE NOT BROKEN [Suspect]
     Active Substance: ROXADUSTAT
     Indication: NEPHROGENIC ANAEMIA
     Route: 065
     Dates: start: 20151110, end: 20151124
  22. AZD9941 CODE NOT BROKEN [Suspect]
     Active Substance: ROXADUSTAT
     Indication: NEPHROGENIC ANAEMIA
     Route: 065
     Dates: start: 20151222, end: 20160105
  23. STUDY PROCEDURE [Suspect]
     Active Substance: INVESTIGATIONAL PRODUCT
     Route: 065
  24. AZD9941 CODE NOT BROKEN [Suspect]
     Active Substance: ROXADUSTAT
     Indication: NEPHROGENIC ANAEMIA
     Route: 065
     Dates: start: 20160105, end: 20160119
  25. AZD9941 CODE NOT BROKEN [Suspect]
     Active Substance: ROXADUSTAT
     Indication: NEPHROGENIC ANAEMIA
     Route: 065
     Dates: start: 20160202, end: 20160216
  26. AZD9941 CODE NOT BROKEN [Suspect]
     Active Substance: ROXADUSTAT
     Indication: NEPHROGENIC ANAEMIA
     Route: 065
     Dates: start: 20160524, end: 20160621
  27. ENALAPRIL [Concomitant]
     Active Substance: ENALAPRIL
     Indication: HYPERTENSION
     Route: 048
     Dates: start: 20150117

REACTIONS (2)
  - Duodenal ulcer [Recovered/Resolved]
  - Gastric haemorrhage [Recovered/Resolved]

NARRATIVE: CASE EVENT DATE: 20161010
